FAERS Safety Report 10861859 (Version 1)
Quarter: 2015Q1

REPORT INFORMATION
  Report Type: Spontaneous
  Country: US (occurrence: US)
  Receive Date: 20150224
  Receipt Date: 20150224
  Transmission Date: 20150721
  Serious: Yes (Death)
  Sender: FDA-Public Use
  Company Number: US-BANPHARM-20153496

PATIENT
  Age: 20 Year
  Sex: Male

DRUGS (5)
  1. MUSCLE RELAXANTN UNKNOWN [Suspect]
     Active Substance: UNSPECIFIED INGREDIENT
  2. TRAMADOL [Suspect]
     Active Substance: TRAMADOL
  3. ETHANOL [Suspect]
     Active Substance: ALCOHOL
  4. ACETAMINOPHEN/DEXTROMETHORPHAN/DOXALAMINE [Suspect]
     Active Substance: ACETAMINOPHEN\DEXTROMETHORPHAN HYDROBROMIDE\DOXYLAMINE SUCCINATE
  5. IBUPROFEN UNKNOWN PRODUCT [Suspect]
     Active Substance: IBUPROFEN

REACTIONS (3)
  - Exposure via ingestion [None]
  - Aspiration [None]
  - Death [Fatal]
